FAERS Safety Report 5009609-8 (Version None)
Quarter: 2006Q2

REPORT INFORMATION
  Report Type: 
  Country: None (occurrence: None)
  Receive Date: 20060524
  Receipt Date: 20060403
  Transmission Date: 20061013
  Serious: Yes (Other)
  Sender: FDA-Public Use
  Company Number: 2006UW05818

PATIENT
  Age: 57 Year
  Sex: Male

DRUGS (4)
  1. SEROQUEL [Suspect]
     Indication: ANXIETY
     Route: 048
  2. LEVITRA [Interacting]
     Indication: ERECTILE DYSFUNCTION
     Route: 048
     Dates: start: 20060210, end: 20060210
  3. VIAGRA [Concomitant]
     Dates: start: 20060101
  4. INSULIN [Concomitant]

REACTIONS (2)
  - DRUG INTERACTION [None]
  - HEART RATE INCREASED [None]
